FAERS Safety Report 6189545-4 (Version None)
Quarter: 2009Q2

REPORT INFORMATION
  Report Type: 
  Country: None (occurrence: None)
  Receive Date: 20090514
  Receipt Date: 20090507
  Transmission Date: 20091009
  Serious: Yes (Disabling)
  Sender: FDA-Public Use
  Company Number: FR-BIOGENIDEC-2009BI012957

PATIENT
  Age: 36 Year
  Sex: Female
  Weight: 58 kg

DRUGS (2)
  1. TYSABRI [Suspect]
     Indication: MULTIPLE SCLEROSIS
     Route: 042
     Dates: start: 20071025, end: 20080328
  2. METHYLPREDNISOLONE 4MG TAB [Concomitant]
     Indication: MULTIPLE SCLEROSIS RELAPSE
     Dates: start: 20080409, end: 20080411

REACTIONS (1)
  - CYTOLYTIC HEPATITIS [None]
